FAERS Safety Report 13081705 (Version 1)
Quarter: 2017Q1

REPORT INFORMATION
  Report Type: Spontaneous
  Country: US (occurrence: US)
  Receive Date: 20170103
  Receipt Date: 20170103
  Transmission Date: 20170428
  Serious: No
  Sender: FDA-Public Use
  Company Number: US-PFIZER INC-2016592480

PATIENT
  Age: 53 Year
  Sex: Female
  Weight: 52 kg

DRUGS (11)
  1. PREMARIN [Interacting]
     Active Substance: ESTROGENS, CONJUGATED
     Indication: VULVOVAGINAL DRYNESS
     Dosage: 0.625 MG, 2X/DAY
     Route: 048
     Dates: start: 201602
  2. SYNTHROID [Interacting]
     Active Substance: LEVOTHYROXINE SODIUM
     Indication: HYPOTHYROIDISM
     Dosage: 100 UG, 1X/DAY (1 PER DAY 6 TIMES A WEEK)
     Route: 048
     Dates: start: 1980, end: 201602
  3. SYNTHROID [Interacting]
     Active Substance: LEVOTHYROXINE SODIUM
     Dosage: 75 UG, 1X/DAY (1 IN 1 D)
     Route: 048
     Dates: start: 201602
  4. VOLTAREN [Concomitant]
     Active Substance: DICLOFENAC SODIUM
     Indication: ARTHRITIS
     Dosage: 2 MG, 1X/DAY (1 IN 1D)
     Route: 061
     Dates: start: 2007
  5. PREMARIN [Interacting]
     Active Substance: ESTROGENS, CONJUGATED
     Indication: ARTIFICIAL MENOPAUSE
  6. PRIMROSE OIL [Concomitant]
     Indication: ARTHRITIS
     Dosage: 1300 MG, 1X/DAY (1 IN 1 D)
     Route: 048
     Dates: start: 2010
  7. PREMARIN [Suspect]
     Active Substance: ESTROGENS, CONJUGATED
     Indication: ARTIFICIAL MENOPAUSE
     Dosage: 1.25 MG, 1X/DAY (1 IN 1 D)
     Route: 048
     Dates: start: 1983
  8. ASPIRIN. [Concomitant]
     Active Substance: ASPIRIN
     Indication: PROPHYLAXIS
     Dosage: 81 MG, 1X/DAY (1 IN 1 D)
     Dates: start: 1985
  9. PREMARIN [Interacting]
     Active Substance: ESTROGENS, CONJUGATED
     Indication: VULVOVAGINAL DRYNESS
     Dosage: UNK UNK, 1X/DAY (CREAM AT BEDTIME (1 IN L D))
     Route: 067
     Dates: start: 2007
  10. CLONAZEPAM. [Concomitant]
     Active Substance: CLONAZEPAM
     Indication: MUSCLE SPASMS
     Dosage: 1 MG, 1X/DAY (1 IN 1 D)
     Route: 048
     Dates: start: 1990
  11. NAPROXEN SODIUM. [Concomitant]
     Active Substance: NAPROXEN SODIUM
     Indication: ARTHRITIS
     Dosage: UNK
     Dates: start: 2007

REACTIONS (31)
  - Hormone level abnormal [Unknown]
  - Abnormal behaviour [Unknown]
  - Vulvovaginal pain [Unknown]
  - Malaise [Unknown]
  - Alopecia [Unknown]
  - Tongue disorder [Not Recovered/Not Resolved]
  - Speech disorder [Not Recovered/Not Resolved]
  - Soliloquy [Unknown]
  - Product physical issue [Unknown]
  - Suspected counterfeit product [Unknown]
  - Sleep disorder [Not Recovered/Not Resolved]
  - Amnesia [Unknown]
  - Blood oestrogen decreased [Unknown]
  - Weight fluctuation [Unknown]
  - Vulvovaginal dryness [Unknown]
  - Pollakiuria [Unknown]
  - Pain [Not Recovered/Not Resolved]
  - Confusional state [Unknown]
  - Product container seal issue [Unknown]
  - Weight decreased [Unknown]
  - Drug ineffective [Unknown]
  - Mood swings [Unknown]
  - Antisocial behaviour [Unknown]
  - Drug dose omission [Unknown]
  - Rash erythematous [Unknown]
  - Myalgia [Unknown]
  - Dry skin [Unknown]
  - Drug interaction [Unknown]
  - Hot flush [Unknown]
  - Product use issue [Unknown]
  - Blood thyroid stimulating hormone decreased [Unknown]

NARRATIVE: CASE EVENT DATE: 2005
